FAERS Safety Report 24917426 (Version 1)
Quarter: 2025Q1

REPORT INFORMATION
  Report Type: Spontaneous
  Country: US (occurrence: None)
  Receive Date: 20250203
  Receipt Date: 20250203
  Transmission Date: 20250409
  Serious: Yes (Other)
  Sender: FDA-CTU
  Company Number: None

PATIENT
  Age: 44 Year
  Sex: Female

DRUGS (2)
  1. DILTIAZEM [Suspect]
     Active Substance: DILTIAZEM
  2. DILTIAZEM [Concomitant]
     Active Substance: DILTIAZEM
     Dates: start: 20250124, end: 20250202

REACTIONS (2)
  - Petechiae [None]
  - Gingival bleeding [None]

NARRATIVE: CASE EVENT DATE: 20250202
